FAERS Safety Report 8997856 (Version 2)
Quarter: 2013Q1

REPORT INFORMATION
  Report Type: Spontaneous
  Country: JP (occurrence: JP)
  Receive Date: 20130104
  Receipt Date: 20130115
  Transmission Date: 20140127
  Serious: Yes (Death)
  Sender: FDA-Public Use
  Company Number: JP-ROCHE-1175033

PATIENT
  Age: 4 Decade
  Sex: Female

DRUGS (2)
  1. ACTEMRA [Suspect]
     Indication: SARCOMA
     Dosage: DOSAGE IS UNCERTAIN.
     Route: 041
  2. ACTEMRA [Suspect]
     Indication: OFF LABEL USE

REACTIONS (1)
  - Tumour embolism [Fatal]
